FAERS Safety Report 25528780 (Version 1)
Quarter: 2025Q3

REPORT INFORMATION
  Report Type: Spontaneous
  Country: US (occurrence: US)
  Receive Date: 20250708
  Receipt Date: 20250708
  Transmission Date: 20251021
  Serious: Yes (Hospitalization, Other)
  Sender: Norvium Bioscience
  Company Number: US-Norvium Bioscience LLC-080371

PATIENT
  Age: 31 Year
  Sex: Female

DRUGS (1)
  1. CARBIDOPA AND LEVODOPA [Suspect]
     Active Substance: CARBIDOPA\LEVODOPA
     Indication: Parkinson^s disease

REACTIONS (5)
  - Exposure during pregnancy [Unknown]
  - Foetal hypokinesia [Unknown]
  - Arrested labour [Unknown]
  - Postpartum haemorrhage [Unknown]
  - Subchorionic haematoma [Recovered/Resolved]
